FAERS Safety Report 18658106 (Version 2)
Quarter: 2020Q4

REPORT INFORMATION
  Report Type: Spontaneous
  Country: US (occurrence: US)
  Receive Date: 20201223
  Receipt Date: 20201229
  Transmission Date: 20210114
  Serious: No
  Sender: FDA-Public Use
  Company Number: US-ELI_LILLY_AND_COMPANY-US202012008565

PATIENT
  Sex: Female

DRUGS (3)
  1. TRULICITY [Suspect]
     Active Substance: DULAGLUTIDE
     Indication: TYPE 2 DIABETES MELLITUS
     Dosage: 1.5 MG, UNKNOWN
     Route: 058
  2. LEXAPRO [Concomitant]
     Active Substance: ESCITALOPRAM OXALATE
     Indication: PRODUCT USED FOR UNKNOWN INDICATION
  3. METFORMIN [Concomitant]
     Active Substance: METFORMIN HYDROCHLORIDE
     Indication: DIABETES MELLITUS
     Dosage: 850 MG, BID

REACTIONS (8)
  - Illness [Recovering/Resolving]
  - Hyperhidrosis [Recovering/Resolving]
  - Visual impairment [Recovering/Resolving]
  - Blood glucose increased [Not Recovered/Not Resolved]
  - Thirst [Recovering/Resolving]
  - Hunger [Recovering/Resolving]
  - Insomnia [Recovering/Resolving]
  - Pollakiuria [Recovering/Resolving]
